FAERS Safety Report 15741850 (Version 1)
Quarter: 2018Q4

REPORT INFORMATION
  Report Type: Spontaneous
  Country: RU (occurrence: RU)
  Receive Date: 20181219
  Receipt Date: 20181219
  Transmission Date: 20190205
  Serious: Yes (Other)
  Sender: FDA-Public Use
  Company Number: RU-BAYER-2018-117802

PATIENT
  Age: 33 Year
  Sex: Female
  Weight: 46.4 kg

DRUGS (2)
  1. QLAIRA [Suspect]
     Active Substance: DIENOGEST\ESTRADIOL VALERATE
     Indication: CONTRACEPTION
     Dosage: 1 DF, UNK
     Route: 048
     Dates: start: 201704, end: 201804
  2. QLAIRA [Suspect]
     Active Substance: DIENOGEST\ESTRADIOL VALERATE
     Indication: ADENOMYOSIS

REACTIONS (9)
  - Drug ineffective [None]
  - Pregnancy on oral contraceptive [Recovered/Resolved]
  - Abortion threatened [Recovered/Resolved]
  - Omphalorrhexis [None]
  - Abdominal pain lower [None]
  - Premature delivery [None]
  - Haemorrhage in pregnancy [None]
  - Umbilical cord abnormality [None]
  - Vasa praevia [None]

NARRATIVE: CASE EVENT DATE: 20180521
